FAERS Safety Report 4995922-7 (Version None)
Quarter: 2006Q2

REPORT INFORMATION
  Report Type: 
  Country: None (occurrence: None)
  Receive Date: 20060504
  Receipt Date: 20060421
  Transmission Date: 20061013
  Serious: Yes (Other)
  Sender: FDA-Public Use
  Company Number: HQWYE810913APR06

PATIENT
  Age: 43 Year
  Sex: Female

DRUGS (1)
  1. EFFEXOR XR [Suspect]
     Indication: DEPRESSION
     Dosage: 75 MG 1X PER 1 DAY ORAL
     Route: 048
     Dates: end: 20060321

REACTIONS (4)
  - HEMIPARESIS [None]
  - NECK PAIN [None]
  - SENSORY LOSS [None]
  - SHOULDER PAIN [None]
